FAERS Safety Report 6130588-4 (Version None)
Quarter: 2009Q1

REPORT INFORMATION
  Report Type: 
  Country: None (occurrence: None)
  Receive Date: 20090323
  Receipt Date: 20090308
  Transmission Date: 20090719
  Serious: Yes (Other)
  Sender: FDA-Public Use
  Company Number: 2007S1006880

PATIENT
  Age: 71 Year
  Sex: Female
  Weight: 58.0604 kg

DRUGS (7)
  1. PHOSPHOSODA FLAVOR NOT SPECIFIED [Suspect]
     Indication: COLONOSCOPY
     Dosage: 90 ML; TOTAL; PO
     Route: 048
     Dates: start: 20050822, end: 20050822
  2. LISINOPRIL [Concomitant]
  3. NORVASC [Concomitant]
  4. INSULIN [Concomitant]
  5. CRESTOR [Concomitant]
  6. ACTOS [Concomitant]
  7. ASPIRIN [Concomitant]

REACTIONS (4)
  - HYPERTENSIVE NEPHROPATHY [None]
  - NEPHROSCLEROSIS [None]
  - RENAL FAILURE CHRONIC [None]
  - RENAL INJURY [None]
